FAERS Safety Report 4310551-6 (Version None)
Quarter: 2004Q1

REPORT INFORMATION
  Report Type: 
  Country: None (occurrence: None)
  Receive Date: 20040303
  Receipt Date: 20040213
  Transmission Date: 20041129
  Serious: Yes (Disabling)
  Sender: FDA-Public Use
  Company Number: PT-GLAXOSMITHKLINE-B0323280A

PATIENT
  Age: 38 Year
  Sex: Female
  Weight: 66 kg

DRUGS (4)
  1. LAMICTAL [Suspect]
     Indication: BIPOLAR DISORDER
     Dosage: 25MG PER DAY
     Route: 048
  2. VENLAFAXINE HCL [Concomitant]
     Route: 048
  3. BUSPIRONE HCL [Concomitant]
     Route: 048
  4. GYNERA [Concomitant]
     Route: 048

REACTIONS (5)
  - FEELING ABNORMAL [None]
  - FEELING HOT AND COLD [None]
  - HEADACHE [None]
  - MENSTRUAL DISORDER [None]
  - VOMITING [None]
